FAERS Safety Report 12539653 (Version 1)
Quarter: 2016Q3

REPORT INFORMATION
  Report Type: Spontaneous
  Country: US (occurrence: None)
  Receive Date: 20160707
  Receipt Date: 20160707
  Transmission Date: 20161109
  Serious: Yes (Hospitalization)
  Sender: FDA-Public Use
  Company Number: None

PATIENT
  Age: 88 Year
  Sex: Female

DRUGS (2)
  1. APIXABAN, 2.5 MG [Suspect]
     Active Substance: APIXABAN
     Indication: ATRIAL FIBRILLATION
     Route: 048
     Dates: start: 20160222, end: 20160628
  2. NAPROXEN, 500 MG [Suspect]
     Active Substance: NAPROXEN
     Indication: ARTHRALGIA
     Route: 048
     Dates: start: 20160615, end: 20160620

REACTIONS (3)
  - Haemoglobin decreased [None]
  - Faeces discoloured [None]
  - Dyspnoea [None]

NARRATIVE: CASE EVENT DATE: 20160625
